FAERS Safety Report 7982834-X (Version None)
Quarter: 2011Q4

REPORT INFORMATION
  Report Type: 
  Country: None (occurrence: None)
  Receive Date: 20111215
  Receipt Date: 20111207
  Transmission Date: 20120403
  Serious: Yes (Life-Threatening)
  Sender: FDA-Public Use
  Company Number: GB-BAYER-2011-112897

PATIENT
  Age: 40 Year
  Sex: Female
  Weight: 60 kg

DRUGS (4)
  1. MIRENA [Suspect]
     Indication: MENORRHAGIA
     Dosage: 20 MCG/24HR, CONT
     Route: 015
     Dates: start: 20101111, end: 20110124
  2. FERROUS SULFATE TAB [Concomitant]
  3. TRANEXAMIC ACID [Concomitant]
  4. MEBENDAZOLE [Concomitant]

REACTIONS (2)
  - BREAST MASS [None]
  - BREAST CANCER [None]
